FAERS Safety Report 5286971-2 (Version None)
Quarter: 2007Q1

REPORT INFORMATION
  Report Type: 
  Country: None (occurrence: None)
  Receive Date: 20070329
  Receipt Date: 20070319
  Transmission Date: 20070707
  Serious: Yes (Other)
  Sender: FDA-Public Use
  Company Number: GXKR2007AT02694

PATIENT
  Age: 63 Year
  Sex: Male

DRUGS (2)
  1. MIRTAZAPINE SANDOZ (NGX) (MIRTAZAPINE)  UNKNOWN, 15 MG [Suspect]
     Dosage: 15MG QD, ORAL
     Route: 048
     Dates: start: 20070101
  2. TAMSULOSIN HCL [Concomitant]

REACTIONS (2)
  - LYMPHOCYTE COUNT INCREASED [None]
  - WHITE BLOOD CELL COUNT INCREASED [None]
